FAERS Safety Report 5422665-8 (Version None)
Quarter: 2007Q3

REPORT INFORMATION
  Report Type: 
  Country: None (occurrence: None)
  Receive Date: 20070822
  Receipt Date: 20070815
  Transmission Date: 20080115
  Serious: Yes (Hospitalization, Other)
  Sender: FDA-Public Use
  Company Number: BR-PFIZER INC-2007067022

PATIENT
  Sex: Male

DRUGS (7)
  1. LIPITOR [Suspect]
     Indication: HYPERCHOLESTEROLAEMIA
     Route: 048
  2. LOSARTAN POTASSIUM [Concomitant]
     Dosage: DAILY DOSE:25MG
     Route: 048
  3. SUSTRATE [Concomitant]
     Route: 048
  4. ASPIRIN [Concomitant]
     Route: 048
  5. MODURETIC 5-50 [Concomitant]
     Dosage: TEXT:25MG/2.5MG
     Route: 048
  6. FRONTAL [Concomitant]
     Indication: NERVOUSNESS
  7. ALL OTHER THERAPEUTIC PRODUCTS [Concomitant]
     Dates: start: 20070701

REACTIONS (5)
  - ARRHYTHMIA [None]
  - ARTERIAL OCCLUSIVE DISEASE [None]
  - BLOOD CREATININE INCREASED [None]
  - BLOOD GLUCOSE [None]
  - POISONING [None]
